FAERS Safety Report 8713418 (Version 4)
Quarter: 2012Q4

REPORT INFORMATION
  Report Type: 
  Country: JP (occurrence: JP)
  Receive Date: 20120808
  Receipt Date: 20121228
  Transmission Date: 20130627
  Serious: Yes (Hospitalization)
  Sender: FDA-Public Use
  Company Number: JP-GLAXOSMITHKLINE-B0820820A

PATIENT
  Age: 68 Year
  Sex: Male
  Weight: 52 kg

DRUGS (9)
  1. VALTREX [Suspect]
     Indication: HERPES ZOSTER
     Dosage: 500MG Twice per day
     Route: 048
     Dates: start: 20120730, end: 20120801
  2. FUROSEMIDE [Concomitant]
     Dosage: 40MG Per day
     Route: 048
  3. ROCALTROL [Concomitant]
     Dosage: .25MCG Per day
     Route: 048
  4. BAYASPIRIN [Concomitant]
     Dosage: 100MG Per day
     Route: 048
  5. WARFARIN [Concomitant]
     Dosage: 2MG Per day
     Route: 048
  6. PLETAAL [Concomitant]
     Dosage: 50MG Per day
     Route: 048
  7. PRECIPITATED CALCIUM CARBONATE [Concomitant]
     Dosage: 500MG Three times per day
     Route: 048
  8. MICARDIS [Concomitant]
     Dosage: 40MG Per day
     Route: 048
  9. AMLODIN [Concomitant]
     Dosage: 2.5MG Per day
     Route: 048

REACTIONS (10)
  - Encephalopathy [Recovered/Resolved]
  - Depressed level of consciousness [Recovered/Resolved]
  - Overdose [Unknown]
  - Gait disturbance [Recovering/Resolving]
  - Abnormal behaviour [Recovering/Resolving]
  - Dyslalia [Recovering/Resolving]
  - Restlessness [Unknown]
  - Hallucination [Unknown]
  - Speech disorder [Unknown]
  - Muscular weakness [Unknown]
